FAERS Safety Report 11726933 (Version 1)
Quarter: 2015Q4

REPORT INFORMATION
  Report Type: Spontaneous
  Country: JP (occurrence: JP)
  Receive Date: 20151112
  Receipt Date: 20151112
  Transmission Date: 20160304
  Serious: Yes (Other)
  Sender: FDA-Public Use
  Company Number: JP-WATSON-2015-12570

PATIENT
  Age: 86 Year
  Sex: Female
  Weight: 45 kg

DRUGS (6)
  1. ISONIAZID. [Suspect]
     Active Substance: ISONIAZID
     Indication: PULMONARY TUBERCULOSIS
     Dosage: 200 MG, DAILY
     Route: 065
  2. RIFAMPICIN [Concomitant]
     Active Substance: RIFAMPIN
     Indication: PULMONARY TUBERCULOSIS
     Dosage: 450 MG, DAILY
     Route: 065
  3. ETHAMBUTOL [Concomitant]
     Active Substance: ETHAMBUTOL HYDROCHLORIDE
     Indication: PULMONARY TUBERCULOSIS
     Dosage: 750 MG, DAILY
     Route: 065
  4. ETHAMBUTOL [Concomitant]
     Active Substance: ETHAMBUTOL HYDROCHLORIDE
     Indication: PERITONEAL TUBERCULOSIS
  5. RIFAMPICIN [Concomitant]
     Active Substance: RIFAMPIN
     Indication: PERITONEAL TUBERCULOSIS
  6. ISONIAZID. [Suspect]
     Active Substance: ISONIAZID
     Indication: PERITONEAL TUBERCULOSIS

REACTIONS (5)
  - Hallucinations, mixed [Recovered/Resolved]
  - Generalised tonic-clonic seizure [Recovered/Resolved]
  - Altered state of consciousness [Recovered/Resolved]
  - Vitamin B6 decreased [Recovered/Resolved]
  - Delirium [Recovered/Resolved]
